FAERS Safety Report 5802569-9 (Version None)
Quarter: 2008Q3

REPORT INFORMATION
  Report Type: 
  Country: None (occurrence: None)
  Receive Date: 20080708
  Receipt Date: 20080704
  Transmission Date: 20090109
  Serious: Yes (Life-Threatening, Other)
  Sender: FDA-Public Use
  Company Number: PHHY2008JP12375

PATIENT
  Age: 77 Year
  Sex: Female

DRUGS (11)
  1. DIOVAN [Suspect]
     Indication: HYPERTENSION
     Dosage: UNK
     Route: 048
     Dates: start: 20080612, end: 20080623
  2. LISINOPRIL [Suspect]
     Dosage: UNK
     Route: 048
     Dates: start: 20070220, end: 20080612
  3. EXCEGRAN [Concomitant]
     Dosage: UNK
  4. SELOKEN [Concomitant]
     Dosage: UNK
     Dates: end: 20080623
  5. NORVASC [Concomitant]
     Dosage: UNK
     Dates: end: 20080623
  6. ROCALTROL [Concomitant]
  7. GASTER [Concomitant]
  8. LASIX [Concomitant]
  9. AMARYL [Concomitant]
  10. UROKINASE [Concomitant]
  11. STEROIDS NOS [Concomitant]

REACTIONS (6)
  - ANAPHYLACTIC REACTION [None]
  - CHEST PAIN [None]
  - HYPOTENSION [None]
  - PRURITUS [None]
  - PULSE ABSENT [None]
  - RENAL IMPAIRMENT [None]
